FAERS Safety Report 26183339 (Version 1)
Quarter: 2025Q4

REPORT INFORMATION
  Report Type: Spontaneous
  Country: US (occurrence: US)
  Receive Date: 20251221
  Receipt Date: 20251221
  Transmission Date: 20260117
  Serious: No
  Sender: SANOFI AVENTIS
  Company Number: US-SA-2025SA376534

PATIENT
  Age: 21 Year
  Sex: Male

DRUGS (4)
  1. ALPROLIX [Suspect]
     Active Substance: EFTRENONACOG ALFA
     Indication: Factor IX deficiency
     Dosage: 7665 U, QW
     Route: 042
     Dates: start: 202507
  2. ALPROLIX [Suspect]
     Active Substance: EFTRENONACOG ALFA
     Indication: Factor IX deficiency
     Dosage: 7665 U, QW
     Route: 042
     Dates: start: 202507
  3. ALPROLIX [Suspect]
     Active Substance: EFTRENONACOG ALFA
     Dosage: 7665 U, PRN
     Route: 042
     Dates: start: 202507
  4. ALPROLIX [Suspect]
     Active Substance: EFTRENONACOG ALFA
     Dosage: 7665 U, PRN
     Route: 042
     Dates: start: 202507

REACTIONS (1)
  - Ingrowing nail [Unknown]

NARRATIVE: CASE EVENT DATE: 20251101
